FAERS Safety Report 14191081 (Version 1)
Quarter: 2017Q4

REPORT INFORMATION
  Report Type: Spontaneous
  Country: US (occurrence: US)
  Receive Date: 20171115
  Receipt Date: 20171115
  Transmission Date: 20180321
  Serious: Yes (Other)
  Sender: FDA-Public Use
  Company Number: US-NOVOPROD-572187

PATIENT
  Age: 99 Year
  Sex: Female

DRUGS (1)
  1. NOVOLOG [Suspect]
     Active Substance: INSULIN ASPART
     Indication: TYPE 2 DIABETES MELLITUS
     Dosage: 10 U IN AM, 12 U IN AFTERNOON, 12 U IN EVENING
     Route: 058
     Dates: start: 1992

REACTIONS (1)
  - Blindness unilateral [Not Recovered/Not Resolved]
